FAERS Safety Report 8511661-X (Version None)
Quarter: 2012Q3

REPORT INFORMATION
  Report Type: 
  Country: None (occurrence: None)
  Receive Date: 20120716
  Receipt Date: 20120702
  Transmission Date: 20120928
  Serious: Yes (Hospitalization, Other)
  Sender: FDA-Public Use
  Company Number: US-ELI_LILLY_AND_COMPANY-US201207001890

PATIENT
  Age: 28 Year
  Sex: Female

DRUGS (3)
  1. ADDERALL 5 [Concomitant]
  2. CYMBALTA [Suspect]
     Indication: DEPRESSION
     Dosage: 60 MG, QD
     Dates: start: 20120501
  3. CYMBALTA [Suspect]
     Dosage: 30 MG, QD
     Route: 048

REACTIONS (2)
  - INTENTIONAL DRUG MISUSE [None]
  - MENTAL DISORDER [None]
